FAERS Safety Report 5284314-1 (Version None)
Quarter: 2007Q1

REPORT INFORMATION
  Report Type: 
  Country: None (occurrence: None)
  Receive Date: 20070327
  Receipt Date: 20070319
  Transmission Date: 20070707
  Serious: Yes (Other)
  Sender: FDA-Public Use
  Company Number: 6031222

PATIENT
  Age: 40 Year
  Sex: Female

DRUGS (1)
  1. CARDENSIEL (TABLET) (BISOPROLOL FUMARATE) [Suspect]
     Indication: DRUG USE FOR UNKNOWN INDICATION
     Dosage: ORAL/FOR 4 YEARS APPROXIMATELY
     Route: 048

REACTIONS (1)
  - CATARACT [None]
